FAERS Safety Report 5578727-8 (Version None)
Quarter: 2008Q1

REPORT INFORMATION
  Report Type: 
  Country: None (occurrence: None)
  Receive Date: 20080102
  Receipt Date: 20071224
  Transmission Date: 20080703
  Serious: Yes (Other)
  Sender: FDA-Public Use
  Company Number: GB-WYE-G00764607

PATIENT
  Age: 62 Year
  Sex: Male

DRUGS (14)
  1. SIROLIMUS [Suspect]
     Dosage: UNKNOWN
     Dates: start: 20020101
  2. ALENDRONIC ACID [Concomitant]
     Dosage: UNKNOWN
  3. ALFACALCIDOL [Concomitant]
     Dosage: UNKNOWN
  4. ALLOPURINOL [Concomitant]
     Dosage: UNKNOWN
  5. ASPIRIN [Concomitant]
     Dosage: UNKNOWN
  6. MYCOPHENOLATE MOFETIL [Concomitant]
     Dosage: UNKNOWN
  7. LATANOPROST [Concomitant]
     Dosage: UNKNOWN
  8. NEORECORMON [Concomitant]
     Dosage: UNKNOWN
  9. PRAVASTATIN [Concomitant]
     Dosage: UNKNOWN
  10. RAMIPRIL [Concomitant]
     Dosage: UNKNOWN
  11. RANITIDINE HCL [Concomitant]
     Dosage: UNKNOWN
  12. SENNA [Concomitant]
     Dosage: UNKNOWN
  13. PREDNISOLONE [Concomitant]
     Dosage: UNKNOWN
  14. FRUSEMIDE [Concomitant]
     Dosage: UNKNOWN

REACTIONS (2)
  - ANAEMIA [None]
  - IRON DEFICIENCY [None]
